FAERS Safety Report 11635890 (Version 1)
Quarter: 2015Q4

REPORT INFORMATION
  Report Type: Report from Study
  Country: US (occurrence: US)
  Receive Date: 20151016
  Receipt Date: 20151016
  Transmission Date: 20160304
  Serious: Yes (Hospitalization, Other)
  Sender: FDA-Public Use
  Company Number: US-AMGEN-USASL2015107454

PATIENT
  Sex: Female

DRUGS (1)
  1. ENBREL [Suspect]
     Active Substance: ETANERCEPT
     Indication: RHEUMATOID ARTHRITIS
     Dosage: UNK
     Route: 065
     Dates: start: 20070201

REACTIONS (5)
  - Renal injury [Recovering/Resolving]
  - Drug dose omission [Unknown]
  - Intentional product misuse [Unknown]
  - Stent placement [Unknown]
  - Stent removal [Unknown]

NARRATIVE: CASE EVENT DATE: 2015
